FAERS Safety Report 10717175 (Version 1)
Quarter: 2015Q1

REPORT INFORMATION
  Report Type: Spontaneous
  Country: US (occurrence: US)
  Receive Date: 20150116
  Receipt Date: 20150116
  Transmission Date: 20150721
  Serious: Yes (Death)
  Sender: FDA-Public Use
  Company Number: US-BAYER-2015-003788

PATIENT
  Age: 30 Year
  Sex: Male

DRUGS (6)
  1. ETHANOL [Suspect]
     Active Substance: ALCOHOL
  2. HYDROCODONE [Suspect]
     Active Substance: HYDROCODONE
  3. HEROIN [Suspect]
     Active Substance: DIACETYLMORPHINE
  4. CAFFEINE. [Suspect]
     Active Substance: CAFFEINE
  5. NICOTINE. [Suspect]
     Active Substance: NICOTINE
  6. DIPHENHYDRAMINE HYDROCHLORIDE. [Suspect]
     Active Substance: DIPHENHYDRAMINE HYDROCHLORIDE

REACTIONS (2)
  - Overdose [Fatal]
  - Drug abuse [Fatal]
